FAERS Safety Report 21371140 (Version 4)
Quarter: 2023Q2

REPORT INFORMATION
  Report Type: Spontaneous
  Country: US (occurrence: US)
  Receive Date: 20220923
  Receipt Date: 20230502
  Transmission Date: 20230722
  Serious: No
  Sender: FDA-Public Use
  Company Number: US-PFIZER INC-PV202200068936

PATIENT
  Age: 75 Year
  Sex: Female

DRUGS (2)
  1. RETACRIT [Suspect]
     Active Substance: EPOETIN ALFA-EPBX
     Dosage: 10000 IU
  2. RETACRIT [Suspect]
     Active Substance: EPOETIN ALFA-EPBX
     Dosage: 40000 IU/ML, CYCLIC (EVERY 2 WEEKS)

REACTIONS (4)
  - Malaise [Unknown]
  - Memory impairment [Unknown]
  - Communication disorder [Unknown]
  - Somnolence [Unknown]
